FAERS Safety Report 16190398 (Version 1)
Quarter: 2019Q2

REPORT INFORMATION
  Report Type: Spontaneous
  Country: US (occurrence: US)
  Receive Date: 20190412
  Receipt Date: 20190412
  Transmission Date: 20190711
  Serious: No
  Sender: FDA-Public Use
  Company Number: US-ASTRAZENECA-2019SE44699

PATIENT
  Age: 26054 Day
  Sex: Male
  Weight: 74.8 kg

DRUGS (8)
  1. SYMBICORT [Suspect]
     Active Substance: BUDESONIDE\FORMOTEROL FUMARATE DIHYDRATE
     Indication: WHEEZING
     Dosage: 160/4.5MCG, 2 INHALATIONS 2 TIMES A DAY
     Route: 055
     Dates: start: 20190226, end: 20190312
  2. LISINOPRIL. [Suspect]
     Active Substance: LISINOPRIL
     Indication: HYPERTENSION
     Route: 048
  3. ESCITALOPRAM [Concomitant]
     Active Substance: ESCITALOPRAM OXALATE
     Indication: AFFECTIVE DISORDER
     Route: 048
  4. BEVESPI AEROSPHERE [Suspect]
     Active Substance: FORMOTEROL FUMARATE\GLYCOPYRROLATE
     Indication: EMPHYSEMA
     Dosage: 9MCG/4.5MCG, 2 INHALATIONS 2 TIMES A DAY
     Route: 055
     Dates: start: 201903
  5. METFORMIN [Concomitant]
     Active Substance: METFORMIN HYDROCHLORIDE
     Indication: BLOOD GLUCOSE ABNORMAL
  6. LOW DOSE ASPIRIN [Concomitant]
     Active Substance: ASPIRIN
     Route: 048
  7. BEVESPI AEROSPHERE [Suspect]
     Active Substance: FORMOTEROL FUMARATE\GLYCOPYRROLATE
     Indication: ASTHMA
     Dosage: 9MCG/4.5MCG, 2 INHALATIONS 2 TIMES A DAY
     Route: 055
     Dates: start: 201903
  8. ATORVASTATIN [Concomitant]
     Active Substance: ATORVASTATIN
     Indication: BLOOD CHOLESTEROL
     Route: 048

REACTIONS (8)
  - Wheezing [Unknown]
  - Nasal congestion [Unknown]
  - Emphysema [Unknown]
  - Product use issue [Unknown]
  - Asthma [Unknown]
  - Cough [Recovered/Resolved]
  - Product use in unapproved indication [Unknown]
  - Off label use [Unknown]
